FAERS Safety Report 9045408 (Version 1)
Quarter: 2013Q1

REPORT INFORMATION
  Report Type: Report from Study
  Country: US (occurrence: US)
  Receive Date: 20130131
  Receipt Date: 20130131
  Transmission Date: 20140127
  Serious: No
  Sender: FDA-Public Use
  Company Number: US-ABBOTT-12P-163-1004838-00

PATIENT
  Age: 62 Year
  Sex: Male

DRUGS (7)
  1. HUMIRA [Suspect]
     Indication: CROHN^S DISEASE
     Dates: start: 20121003
  2. SEREVENT [Concomitant]
     Indication: ASTHMA
     Dosage: 50MCG EVERY DAY
  3. SPIRIVA [Concomitant]
     Indication: ASTHMA
     Dosage: 18MCG DAILY
  4. VENTOLIN [Concomitant]
     Indication: ASTHMA
  5. PULMICORT [Concomitant]
     Indication: ASTHMA
  6. IMDUR [Concomitant]
     Indication: BLOOD CHOLESTEROL INCREASED
     Dosage: 30MG EVERY DAY
  7. LIPITOR [Concomitant]
     Indication: BLOOD CHOLESTEROL INCREASED
     Dosage: 40MG DAILY

REACTIONS (4)
  - Eye pruritus [Not Recovered/Not Resolved]
  - Pain in extremity [Not Recovered/Not Resolved]
  - Nodule [Not Recovered/Not Resolved]
  - Pruritus [Not Recovered/Not Resolved]
